FAERS Safety Report 25900238 (Version 1)
Quarter: 2025Q4

REPORT INFORMATION
  Report Type: Spontaneous
  Country: EU (occurrence: EU)
  Receive Date: 20251009
  Receipt Date: 20251009
  Transmission Date: 20260118
  Serious: Yes (Other)
  Sender: AUROBINDO
  Company Number: EU-SANDOZ-SDZ2025DE071302

PATIENT
  Age: 41 Year
  Sex: Female

DRUGS (4)
  1. EXEMESTANE [Suspect]
     Active Substance: EXEMESTANE
     Indication: Palliative care
     Dosage: 25 MILLIGRAM, ONCE A DAY
     Route: 048
     Dates: start: 201711
  2. EXEMESTANE [Suspect]
     Active Substance: EXEMESTANE
     Indication: Breast cancer
  3. EVEROLIMUS [Suspect]
     Active Substance: EVEROLIMUS
     Indication: Palliative care
     Dosage: 10 MILLIGRAM, ONCE A DAY
     Route: 048
     Dates: start: 201711
  4. EVEROLIMUS [Suspect]
     Active Substance: EVEROLIMUS
     Indication: Breast cancer

REACTIONS (1)
  - Metastases to pancreas [Unknown]

NARRATIVE: CASE EVENT DATE: 20180101
